FAERS Safety Report 8405158-5 (Version None)
Quarter: 2012Q2

REPORT INFORMATION
  Report Type: 
  Country: None (occurrence: None)
  Receive Date: 20120602
  Receipt Date: 20120524
  Transmission Date: 20120825
  Serious: Yes (Life-Threatening)
  Sender: FDA-Public Use
  Company Number: LV-TEVA-339507ISR

PATIENT
  Age: 58 Year
  Sex: Female
  Weight: 87 kg

DRUGS (4)
  1. METFORMIN HYDROCHLORIDE [Concomitant]
  2. CARBOPLATIN [Suspect]
     Route: 042
     Dates: start: 20120521
  3. METOPROLOL SUCCINATE [Concomitant]
  4. SILYMARINUM [Concomitant]

REACTIONS (8)
  - BURNING SENSATION [None]
  - THROAT IRRITATION [None]
  - DIZZINESS [None]
  - CHEST PAIN [None]
  - DYSPNOEA [None]
  - HYPOTENSION [None]
  - TACHYCARDIA [None]
  - AGITATION [None]
